FAERS Safety Report 24848083 (Version 3)
Quarter: 2025Q1

REPORT INFORMATION
  Report Type: Report from Study
  Country: CN (occurrence: CN)
  Receive Date: 20250116
  Receipt Date: 20250227
  Transmission Date: 20250409
  Serious: Yes (Hospitalization)
  Sender: ROCHE
  Company Number: CN-ROCHE-10000166844

PATIENT
  Age: 67 Year
  Sex: Female
  Weight: 48 kg

DRUGS (29)
  1. POLATUZUMAB VEDOTIN [Suspect]
     Active Substance: POLATUZUMAB VEDOTIN
     Indication: Diffuse large B-cell lymphoma
     Route: 042
     Dates: start: 20241204, end: 20241204
  2. DEXAMETHASONE [Suspect]
     Active Substance: DEXAMETHASONE
     Indication: Diffuse large B-cell lymphoma
     Route: 042
     Dates: start: 20241205, end: 20241209
  3. CYCLOPHOSPHAMIDE [Suspect]
     Active Substance: CYCLOPHOSPHAMIDE
     Indication: Diffuse large B-cell lymphoma
     Route: 042
     Dates: start: 20241205, end: 20241205
  4. ZUBERITAMAB [Suspect]
     Active Substance: ZUBERITAMAB
     Indication: Diffuse large B-cell lymphoma
     Route: 042
     Dates: start: 20241204, end: 20241204
  5. DOXORUBICIN HYDROCHLORIDE [Suspect]
     Active Substance: DOXORUBICIN HYDROCHLORIDE
     Indication: Diffuse large B-cell lymphoma
     Route: 042
     Dates: start: 20241205, end: 20241205
  6. Magnesium Isoglycyrrhizinate Injection [Concomitant]
     Route: 042
     Dates: start: 20241204, end: 20241209
  7. Calcium carbonate D3 tablets [Concomitant]
     Route: 048
     Dates: start: 20241204, end: 20241209
  8. Calcium carbonate D3 tablets [Concomitant]
     Route: 048
     Dates: start: 20250108, end: 20250108
  9. Roxatidine hydrochloride acetate for inj [Concomitant]
     Route: 042
     Dates: start: 20241204, end: 20241209
  10. Calcium dibutyryl cyclic adenosine phosphate for inj [Concomitant]
     Route: 042
     Dates: start: 20241204, end: 20241209
  11. Calcium dibutyryl cyclic adenosine phosphate for inj [Concomitant]
     Route: 042
     Dates: start: 20250108, end: 20250108
  12. Calcium dibutyryl cyclic adenosine phosphate for inj [Concomitant]
     Route: 042
     Dates: start: 20250207, end: 20250207
  13. Dolasetron mesylate injection [Concomitant]
     Route: 042
     Dates: start: 20250207, end: 20250207
  14. Dolasetron mesylate injection [Concomitant]
     Route: 042
     Dates: start: 20250108, end: 20250108
  15. Pantoprazole sodium injection [Concomitant]
     Route: 042
     Dates: start: 20250207, end: 20250207
  16. Pantoprazole sodium injection [Concomitant]
     Route: 042
     Dates: start: 20250108, end: 20250108
  17. Loxoprofen sodium tablet [Concomitant]
     Route: 048
     Dates: start: 20250206, end: 20250206
  18. Loxoprofen sodium tablet [Concomitant]
     Route: 048
     Dates: start: 20250107, end: 20250107
  19. LORATADINE [Concomitant]
     Active Substance: LORATADINE
     Route: 048
     Dates: start: 20250206, end: 20250206
  20. LORATADINE [Concomitant]
     Active Substance: LORATADINE
     Route: 048
     Dates: start: 20250107, end: 20250107
  21. ENTECAVIR [Concomitant]
     Active Substance: ENTECAVIR
     Route: 048
     Dates: start: 20250206, end: 20250206
  22. ENTECAVIR [Concomitant]
     Active Substance: ENTECAVIR
     Route: 048
     Dates: start: 20250108, end: 20250108
  23. Prednisone acetate tablet [Concomitant]
     Route: 048
     Dates: start: 20250108, end: 20250108
  24. Pantoprazole sodium enteric-coated tablets [Concomitant]
     Route: 048
     Dates: start: 20250108, end: 20250108
  25. Pegylated recombinant human granulocyte stimulating factor injection [Concomitant]
     Route: 058
     Dates: start: 20250207, end: 20250207
  26. Pegylated recombinant human granulocyte stimulating factor injection [Concomitant]
     Route: 058
     Dates: start: 20250108, end: 20250108
  27. DEXAMETHASONE SODIUM PHOSPHATE [Concomitant]
     Active Substance: DEXAMETHASONE SODIUM PHOSPHATE
     Route: 042
     Dates: start: 20250107, end: 20250107
  28. DEXAMETHASONE SODIUM PHOSPHATE [Concomitant]
     Active Substance: DEXAMETHASONE SODIUM PHOSPHATE
     Route: 042
     Dates: start: 20250206, end: 20250206
  29. PHOSPHOLIPID [Concomitant]
     Active Substance: PHOSPHOLIPID
     Route: 042
     Dates: start: 20250207, end: 20250207

REACTIONS (6)
  - Granulocyte count decreased [Recovered/Resolved]
  - Lymphocyte count decreased [Recovered/Resolved]
  - Hyponatraemia [Recovered/Resolved]
  - White blood cell count decreased [Recovered/Resolved]
  - Anaemia [Not Recovered/Not Resolved]
  - Hypochloraemia [Recovered/Resolved]

NARRATIVE: CASE EVENT DATE: 20241209
